FAERS Safety Report 26130312 (Version 1)
Quarter: 2025Q4

REPORT INFORMATION
  Report Type: Spontaneous
  Country: EU (occurrence: EU)
  Receive Date: 20251208
  Receipt Date: 20251208
  Transmission Date: 20260118
  Serious: Yes (Hospitalization)
  Sender: AUROBINDO
  Company Number: EU-ASTELLAS-2025-AER-056461

PATIENT
  Age: 60 Year
  Sex: Female

DRUGS (13)
  1. OXALIPLATIN [Suspect]
     Active Substance: OXALIPLATIN
     Indication: Product used for unknown indication
     Dosage: UNK UNK, CYCLICAL
     Route: 065
  2. VYLOY [Suspect]
     Active Substance: ZOLBETUXIMAB-CLZB
     Indication: Metastatic gastric cancer
     Dosage: ROUTE OF ADMINISTRATION FOR VYLOY: PORTACATH; TOTAL OF 5 CYCLES
     Route: 065
     Dates: start: 20250423, end: 20250902
  3. FLUOROURACIL [Suspect]
     Active Substance: FLUOROURACIL
     Indication: Product used for unknown indication
     Dosage: UNK UNK, CYCLICAL
     Route: 065
  4. FENTANYL [Concomitant]
     Active Substance: FENTANYL
     Indication: Product used for unknown indication
     Dosage: 12 MICROGRAM, 3 TIMES A DAY
     Route: 065
  5. FENTANYL [Concomitant]
     Active Substance: FENTANYL
     Dosage: 75 MICROGRAM, 3 TIMES A DAY
  6. ENSURE [Concomitant]
     Active Substance: AMINO ACIDS\DEXTROSE\ELECTROLYTES NOS\SOYBEAN OIL\VITAMINS
     Indication: Product used for unknown indication
     Dosage: UNK08/20
     Route: 065
  7. DEXAMETHASONE [Concomitant]
     Active Substance: DEXAMETHASONE
     Indication: Nausea
     Dosage: 8 MILLIGRAM, ONCE A DAY
  8. DEXAMETHASONE [Concomitant]
     Active Substance: DEXAMETHASONE
     Dosage: DEXAMETHASONE 12 EACH CYCLE
  9. FOSAPREPITANT [Concomitant]
     Active Substance: FOSAPREPITANT
     Indication: Nausea
     Dosage: 150 MILLIGRAM
     Route: 065
  10. PANTOPRAZOLE [Concomitant]
     Active Substance: PANTOPRAZOLE
     Indication: Nausea
     Dosage: 40 MILLIGRAM
     Route: 065
  11. ALMAGATE [Concomitant]
     Active Substance: ALMAGATE
     Indication: Nausea
     Dosage: 1 SACHET BREAKFAST, LUNCH, AND DINNER
     Route: 065
  12. LORAZEPAM [Concomitant]
     Active Substance: LORAZEPAM
     Indication: Nausea
     Dosage: 1 MILLIGRAM, ONCE A DAY
     Route: 065
  13. ABSTRAL [Concomitant]
     Active Substance: FENTANYL CITRATE
     Indication: Pain
     Dosage: 200 MICROGRAM

REACTIONS (5)
  - Protein total decreased [Unknown]
  - Malnutrition [Unknown]
  - Vomiting [Recovered/Resolved]
  - Nausea [Unknown]
  - Toxicity to various agents [Unknown]

NARRATIVE: CASE EVENT DATE: 20250423
